FAERS Safety Report 9704278 (Version 3)
Quarter: 2014Q1

REPORT INFORMATION
  Report Type: Spontaneous
  Country: US (occurrence: US)
  Receive Date: 20131122
  Receipt Date: 20140102
  Transmission Date: 20141002
  Serious: No
  Sender: FDA-Public Use
  Company Number: US-FRI-1000051209

PATIENT
  Age: 77 Year
  Sex: Male

DRUGS (6)
  1. LINZESS [Suspect]
     Indication: CONSTIPATION
     Dosage: 145 MCG
     Route: 048
     Dates: start: 20131113, end: 20131115
  2. FOLIC ACID [Concomitant]
  3. OS-CAL D [Concomitant]
  4. FISH OIL [Concomitant]
  5. VITAMIN B [Concomitant]
  6. VITAMIN D [Concomitant]

REACTIONS (2)
  - Chromaturia [Not Recovered/Not Resolved]
  - Diarrhoea [Recovered/Resolved]
